FAERS Safety Report 18300338 (Version 2)
Quarter: 2020Q3

REPORT INFORMATION
  Report Type: Spontaneous
  Country: CA (occurrence: CA)
  Receive Date: 20200923
  Receipt Date: 20200930
  Transmission Date: 20201103
  Serious: Yes (Other)
  Sender: FDA-Public Use
  Company Number: CA-CELLTRION INC.-2020CA019972

PATIENT

DRUGS (6)
  1. INFLECTRA [Suspect]
     Active Substance: INFLIXIMAB-DYYB
     Dosage: 400 MG (5 MG/KG), AT 0, 2,6 WEEKS THEN EVERY 6 WEEKS
     Route: 042
     Dates: start: 20200728
  2. INFLECTRA [Suspect]
     Active Substance: INFLIXIMAB-DYYB
     Indication: NEUROSARCOIDOSIS
     Dosage: 400 MG (5 MG/KG), AT 0, 2,6 WEEKS THEN EVERY 6 WEEKS
     Route: 042
     Dates: start: 20200303, end: 20200303
  3. INFLECTRA [Suspect]
     Active Substance: INFLIXIMAB-DYYB
     Dosage: 400 MG (5 MG/KG), AT 0, 2,6 WEEKS THEN EVERY 6 WEEKS
     Route: 042
     Dates: start: 20200909
  4. INFLECTRA [Suspect]
     Active Substance: INFLIXIMAB-DYYB
     Dosage: 400 MG (5 MG/KG), AT 0, 2,6 WEEKS THEN EVERY 6 WEEKS
     Route: 042
     Dates: start: 20200414, end: 20200414
  5. PREDNISONE. [Concomitant]
     Active Substance: PREDNISONE
     Dosage: 80 MG, DAILY
     Route: 048
  6. INFLECTRA [Suspect]
     Active Substance: INFLIXIMAB-DYYB
     Dosage: 400 MG (5 MG/KG), AT 0, 2,6 WEEKS THEN EVERY 6 WEEKS
     Route: 042
     Dates: start: 20200611, end: 20200611

REACTIONS (11)
  - Intentional product use issue [Unknown]
  - Blood pressure increased [Unknown]
  - Body temperature decreased [Unknown]
  - Off label use [Unknown]
  - Pain in extremity [Unknown]
  - Tuberculosis [Not Recovered/Not Resolved]
  - Inappropriate schedule of product administration [Unknown]
  - Chest pain [Unknown]
  - Product use in unapproved indication [Unknown]
  - Limb discomfort [Unknown]
  - Back pain [Not Recovered/Not Resolved]

NARRATIVE: CASE EVENT DATE: 202003
